FAERS Safety Report 6615919-0 (Version None)
Quarter: 2010Q1

REPORT INFORMATION
  Report Type: 
  Country: None (occurrence: None)
  Receive Date: 20100305
  Receipt Date: 20100223
  Transmission Date: 20100710
  Serious: Yes (Other)
  Sender: FDA-Public Use
  Company Number: GXKR2010GB02215

PATIENT
  Age: 40 Year
  Sex: Female

DRUGS (4)
  1. EPIRUBICIN (NGX) [Suspect]
     Indication: BREAST CANCER
     Dosage: 4 CYCLES (165 MG); CUMULATIVE DOSE: 400 MG/M2
     Route: 065
  2. METHOTREXATE [Suspect]
     Indication: BREAST CANCER
     Dosage: 6 CYCLES (65 MG)
     Route: 065
  3. FLUOROURACIL [Suspect]
     Indication: BREAST CANCER
     Dosage: 6 CYCLES (990 MG)
     Route: 065
  4. CYCLOPHOSPHAMIDE [Suspect]
     Indication: BREAST CANCER
     Dosage: 6 CYCLES (990 MG)
     Route: 065

REACTIONS (1)
  - ACUTE PROMYELOCYTIC LEUKAEMIA [None]
